FAERS Safety Report 9912622 (Version 2)
Quarter: 2014Q2

REPORT INFORMATION
  Report Type: Report from Study
  Country: CL (occurrence: CL)
  Receive Date: 20140220
  Receipt Date: 20140520
  Transmission Date: 20141212
  Serious: Yes (Other)
  Sender: FDA-Public Use
  Company Number: CL-ROCHE-1351359

PATIENT
  Age: 48 Year
  Sex: Female
  Weight: 84 kg

DRUGS (4)
  1. XELODA [Suspect]
     Indication: PRODUCT USED FOR UNKNOWN INDICATION
     Route: 048
     Dates: start: 20131219, end: 20140428
  2. PREDNISONE [Concomitant]
     Indication: NON-HODGKIN^S LYMPHOMA
     Dosage: 7 DAYS PER CYCLE EACH 21 DAYS
     Route: 048
  3. SALBUTAMOL [Concomitant]
     Indication: ASTHMA
     Route: 048
     Dates: start: 2012
  4. LORATADINE [Concomitant]
     Indication: ASTHMA
     Route: 048
     Dates: start: 2012

REACTIONS (1)
  - Respiratory distress [Recovered/Resolved]
